FAERS Safety Report 14355306 (Version 8)
Quarter: 2018Q2

REPORT INFORMATION
  Report Type: Spontaneous
  Country: AT (occurrence: AT)
  Receive Date: 20180105
  Receipt Date: 20180418
  Transmission Date: 20180711
  Serious: Yes (Hospitalization, Other)
  Sender: FDA-Public Use
  Company Number: AT-PFIZER INC-2017440413

PATIENT
  Age: 76 Year
  Sex: Female

DRUGS (32)
  1. MONURIL [Concomitant]
     Active Substance: FOSFOMYCIN SODIUM
     Dosage: 3 G, UNK
     Dates: start: 20170805, end: 20170805
  2. DULOXETINE. [Interacting]
     Active Substance: DULOXETINE
     Dosage: 60 MG, UNK
     Route: 048
     Dates: start: 20170805, end: 20170808
  3. SODIUM CHLORIDE. [Concomitant]
     Active Substance: SODIUM CHLORIDE
     Dosage: 6 DF, UNK
     Route: 048
     Dates: start: 20170822
  4. ATARAX [Concomitant]
     Active Substance: HYDROXYZINE HYDROCHLORIDE
     Dosage: 25 MG, UNK
     Dates: start: 20170824
  5. XANOR [Suspect]
     Active Substance: ALPRAZOLAM
     Dosage: 1.5 MG, UNK
     Route: 048
     Dates: start: 20170802, end: 20170808
  6. XANOR [Interacting]
     Active Substance: ALPRAZOLAM
     Dosage: 0.5 MG, UNK
     Route: 048
     Dates: start: 20170814, end: 20170815
  7. RISPERDAL [Interacting]
     Active Substance: RISPERIDONE
     Dosage: 1 MG, UNK
     Route: 048
     Dates: start: 20170801, end: 20170802
  8. DULOXETINE. [Interacting]
     Active Substance: DULOXETINE
     Dosage: 30 MG, UNK
     Route: 048
     Dates: start: 20170802, end: 20170804
  9. SODIUM CHLORIDE. [Concomitant]
     Active Substance: SODIUM CHLORIDE
     Dosage: 8 DF, UNK
     Route: 048
     Dates: start: 20170807, end: 20170821
  10. NEUROMULTIVIT [Concomitant]
     Active Substance: CYANOCOBALAMIN\PYRIDOXINE\THIAMINE
     Dosage: 3 DF, UNK
     Route: 048
     Dates: start: 20170802, end: 20170819
  11. TRITTICO RETARD [Concomitant]
     Active Substance: TRAZODONE HYDROCHLORIDE
     Dosage: 100 MG, UNK
     Dates: start: 20170823
  12. ALNA RETARD [Concomitant]
     Active Substance: TAMSULOSIN HYDROCHLORIDE
     Dosage: 0.4 MG, UNK
     Dates: start: 20170823
  13. RISPERDAL [Interacting]
     Active Substance: RISPERIDONE
     Dosage: 2 MG, UNK
     Route: 048
     Dates: start: 20170803, end: 20170821
  14. RISPERDAL [Interacting]
     Active Substance: RISPERIDONE
     Dosage: 1.5 MG, UNK
     Route: 048
     Dates: start: 20170822
  15. MIRTABENE [Interacting]
     Active Substance: MIRTAZAPINE
     Dosage: 30 MG, UNK
     Route: 048
     Dates: start: 20170801, end: 20170816
  16. DULOXETINE. [Interacting]
     Active Substance: DULOXETINE
     Dosage: 90 MG, UNK
     Route: 048
     Dates: start: 20170809, end: 20170816
  17. ANTIBIOPHILUS [Concomitant]
     Dosage: 1 DF, UNK
     Dates: start: 20170811, end: 20170811
  18. XANOR [Interacting]
     Active Substance: ALPRAZOLAM
     Dosage: 1.25 MG, UNK
     Route: 048
     Dates: start: 20170809, end: 20170809
  19. XANOR [Interacting]
     Active Substance: ALPRAZOLAM
     Dosage: 1 MG, UNK
     Route: 048
     Dates: start: 20170810, end: 20170810
  20. RISPERDAL [Interacting]
     Active Substance: RISPERIDONE
     Dosage: 0.5 MG, UNK
     Dates: start: 20170731
  21. SODIUM CHLORIDE. [Concomitant]
     Active Substance: SODIUM CHLORIDE
     Dosage: 7 DF, UNK
     Route: 048
     Dates: start: 20170806, end: 20170806
  22. XANOR [Interacting]
     Active Substance: ALPRAZOLAM
     Dosage: 0.25 MG, UNK
     Route: 048
     Dates: start: 20170816, end: 20170816
  23. DULOXETINE. [Interacting]
     Active Substance: DULOXETINE
     Dosage: 60 MG, UNK
     Route: 048
     Dates: start: 20170817, end: 20170819
  24. MOLAXOLE [Concomitant]
     Active Substance: POLYETHYLENE GLYCOL 3350\POTASSIUM CHLORIDE\SODIUM BICARBONATE\SODIUM CHLORIDE
     Dosage: 1 DF, UNK
     Route: 048
     Dates: start: 20170802
  25. TRITTICO RETARD [Concomitant]
     Active Substance: TRAZODONE HYDROCHLORIDE
     Dosage: 50 MG, UNK
     Dates: start: 20170817, end: 20170822
  26. XANOR [Interacting]
     Active Substance: ALPRAZOLAM
     Dosage: 0.75 MG, UNK
     Route: 048
     Dates: start: 20170811, end: 20170813
  27. ANTIBIOPHILUS [Concomitant]
     Dosage: 3 DF, UNK
     Dates: start: 20170812, end: 20170816
  28. SELEXID [Concomitant]
     Dosage: 200 MG, UNK
     Route: 048
     Dates: start: 20170816, end: 20170816
  29. SELEXID [Concomitant]
     Dosage: 400 MG, UNK
     Route: 048
     Dates: start: 20170817, end: 20170827
  30. SELEXID [Concomitant]
     Dosage: 200 MG, UNK
     Route: 048
     Dates: start: 20170828, end: 20170828
  31. MIRTABENE [Interacting]
     Active Substance: MIRTAZAPINE
     Dosage: 45 MG, 1X/DAY
     Dates: start: 20170701
  32. SODIUM CHLORIDE. [Concomitant]
     Active Substance: SODIUM CHLORIDE
     Dosage: 3 DF, UNK
     Route: 048
     Dates: start: 20170802, end: 20170805

REACTIONS (6)
  - Blood glucose increased [Recovered/Resolved]
  - Disease recurrence [Recovered/Resolved]
  - Blood pressure increased [Unknown]
  - Urinary retention [Recovered/Resolved]
  - Urinary tract infection staphylococcal [Recovered/Resolved]
  - Drug interaction [Recovered/Resolved]

NARRATIVE: CASE EVENT DATE: 20170807
